FAERS Safety Report 10931404 (Version 1)
Quarter: 2015Q1

REPORT INFORMATION
  Report Type: Spontaneous
  Country: US (occurrence: US)
  Receive Date: 20150319
  Receipt Date: 20150319
  Transmission Date: 20150721
  Serious: No
  Sender: FDA-Public Use
  Company Number: US-SHIONOGI, INC-2015000161

PATIENT
  Age: 50 Year
  Sex: Female

DRUGS (1)
  1. OSPHENA [Suspect]
     Active Substance: OSPEMIFENE
     Indication: DYSPAREUNIA
     Dosage: UNK
     Route: 065
     Dates: start: 201412

REACTIONS (5)
  - Hyperhidrosis [Unknown]
  - Intentional underdose [Unknown]
  - Hot flush [Unknown]
  - Dyspareunia [Unknown]
  - Exposure during breast feeding [Unknown]
